FAERS Safety Report 8423460-8 (Version None)
Quarter: 2012Q2

REPORT INFORMATION
  Report Type: 
  Country: None (occurrence: None)
  Receive Date: 20120608
  Receipt Date: 20120530
  Transmission Date: 20120825
  Serious: Yes (Other)
  Sender: FDA-Public Use
  Company Number: US-ASTRAZENECA-2012SE36163

PATIENT
  Age: 58 Year
  Sex: Female

DRUGS (2)
  1. NEXIUM [Suspect]
     Route: 048
  2. UNSPECIFIED ANTIBIOTIC [Suspect]
     Indication: GASTRIC DISORDER
     Route: 065

REACTIONS (6)
  - BLOOD GLUCOSE DECREASED [None]
  - HYPERSOMNIA [None]
  - THYROID DISORDER [None]
  - HYPOTHYROIDISM [None]
  - RED BLOOD CELL COUNT DECREASED [None]
  - URTICARIA [None]
